FAERS Safety Report 26069958 (Version 1)
Quarter: 2025Q4

REPORT INFORMATION
  Report Type: Spontaneous
  Country: CN (occurrence: CN)
  Receive Date: 20251120
  Receipt Date: 20251120
  Transmission Date: 20260119
  Serious: Yes (Hospitalization, Other)
  Sender: BAYER HEALTHCARE PHARMACEUTICALS INC.
  Company Number: CN-BAYER-2025A153539

PATIENT
  Age: 90 Year
  Sex: Female
  Weight: 53 kg

DRUGS (1)
  1. AVELOX [Suspect]
     Active Substance: MOXIFLOXACIN HYDROCHLORIDE
     Indication: Pneumonia
     Dosage: 0.4 G, TID
     Route: 048
     Dates: start: 20251017, end: 20251019

REACTIONS (10)
  - Acute left ventricular failure [None]
  - Chest discomfort [Recovering/Resolving]
  - Dyspnoea [Recovering/Resolving]
  - Dysphoria [Recovered/Resolved]
  - Oedema [Recovering/Resolving]
  - Renal failure [Recovered/Resolved]
  - Tachypnoea [None]
  - Blood pressure increased [None]
  - Sleep disorder [None]
  - Inappropriate schedule of product administration [None]

NARRATIVE: CASE EVENT DATE: 20251001
